FAERS Safety Report 7271501-6 (Version None)
Quarter: 2011Q1

REPORT INFORMATION
  Report Type: 
  Country: None (occurrence: None)
  Receive Date: 20110128
  Receipt Date: 20110128
  Transmission Date: 20110831
  Serious: Yes (Life-Threatening, Hospitalization, Disabling, Other)
  Sender: FDA-Public Use
  Company Number: None

PATIENT
  Sex: Female
  Weight: 54.4316 kg

DRUGS (1)
  1. PROPOXYPHENE HYDROCHLORIDE [Suspect]
     Indication: SURGERY
     Dosage: 1 TABLET 4 TIMES DAILY
     Dates: start: 20090101, end: 20100801

REACTIONS (3)
  - CARDIAC DISORDER [None]
  - PERICARDIAL EFFUSION [None]
  - APPARENT DEATH [None]
